FAERS Safety Report 10061454 (Version 1)
Quarter: 2014Q2

REPORT INFORMATION
  Report Type: Spontaneous
  Country: FR (occurrence: FR)
  Receive Date: 20140407
  Receipt Date: 20140407
  Transmission Date: 20141212
  Serious: Yes (Hospitalization)
  Sender: FDA-Public Use
  Company Number: FR-JNJFOC-20140318290

PATIENT
  Age: 26 Year
  Sex: Male

DRUGS (7)
  1. RISPERDAL [Suspect]
     Indication: PRODUCT USED FOR UNKNOWN INDICATION
     Route: 048
     Dates: start: 20130607, end: 20140131
  2. XEROQUEL [Suspect]
     Indication: PRODUCT USED FOR UNKNOWN INDICATION
     Route: 065
     Dates: start: 20130325, end: 20140131
  3. LOXAPAC [Suspect]
     Indication: PRODUCT USED FOR UNKNOWN INDICATION
     Route: 065
     Dates: start: 20130607, end: 20140131
  4. DEPAMIDE [Concomitant]
     Route: 065
     Dates: start: 20130529, end: 20140131
  5. VALIUM [Concomitant]
     Route: 065
     Dates: start: 20130607, end: 20140131
  6. LEPTICUR [Concomitant]
     Route: 065
     Dates: start: 20130517, end: 20140203
  7. DAFLON [Concomitant]
     Dosage: 500 MG
     Route: 065

REACTIONS (3)
  - Extrapyramidal disorder [Recovering/Resolving]
  - Infection [Unknown]
  - Inflammation [Unknown]
